FAERS Safety Report 8648779 (Version 3)
Quarter: 2012Q4

REPORT INFORMATION
  Report Type: 
  Country: CA (occurrence: CA)
  Receive Date: 20120703
  Receipt Date: 20121219
  Transmission Date: 20130627
  Serious: Yes (Hospitalization, Other)
  Sender: FDA-Public Use
  Company Number: CA-AMGEN-CANSP2012037339

PATIENT
  Age: 89 Year
  Sex: Male
  Weight: 75.28 kg

DRUGS (3)
  1. PROLIA [Suspect]
     Indication: OSTEOPOROSIS
     Dosage: 60 mg, q6mo
     Route: 058
     Dates: start: 20101210, end: 20120604
  2. ASA [Concomitant]
     Indication: CARDIOVASCULAR DISORDER
  3. FOSINOPRIL [Concomitant]
     Indication: HYPERTENSION
     Route: 048

REACTIONS (4)
  - Exostosis [Recovering/Resolving]
  - Oral surgery [Recovered/Resolved]
  - Osteonecrosis of jaw [Recovered/Resolved]
  - Pain in jaw [Not Recovered/Not Resolved]
